FAERS Safety Report 17780021 (Version 3)
Quarter: 2020Q2

REPORT INFORMATION
  Report Type: Spontaneous
  Country: US (occurrence: US)
  Receive Date: 20200514
  Receipt Date: 20200609
  Transmission Date: 20200714
  Serious: No
  Sender: FDA-Public Use
  Company Number: US-SAGE-2020SAGE000038

PATIENT

DRUGS (8)
  1. PHENOBARBITAL. [Concomitant]
     Active Substance: PHENOBARBITAL
     Indication: PRODUCT USED FOR UNKNOWN INDICATION
     Dosage: 130 MG, Q8H
     Route: 065
  2. ZULRESSO [Suspect]
     Active Substance: BREXANOLONE
     Indication: STATUS EPILEPTICUS
     Dosage: 300 MCG/KG LOADING DOSE OVER 1 HOUR
     Route: 042
     Dates: start: 20200501, end: 20200501
  3. KETAMINE HCL [Concomitant]
     Active Substance: KETAMINE HYDROCHLORIDE
     Indication: PRODUCT USED FOR UNKNOWN INDICATION
     Dosage: 8 MG/KG/HR (WEANED TO OFF DURING BREXANOLONE INFUSION)
     Route: 065
     Dates: end: 202005
  4. CLOBAZAM. [Concomitant]
     Active Substance: CLOBAZAM
     Indication: PRODUCT USED FOR UNKNOWN INDICATION
     Dosage: 40 MG, Q12H
     Route: 065
  5. BRIVARACETAM [Concomitant]
     Active Substance: BRIVARACETAM
     Indication: PRODUCT USED FOR UNKNOWN INDICATION
     Dosage: 100 MG, Q12H
     Route: 065
  6. ZULRESSO [Suspect]
     Active Substance: BREXANOLONE
     Dosage: CONTINUOUS INFUSION 90 MCG/KG/HR FOR 119 HOURS
     Route: 042
     Dates: start: 20200501, end: 20200506
  7. LACOSAMIDE. [Concomitant]
     Active Substance: LACOSAMIDE
     Indication: PRODUCT USED FOR UNKNOWN INDICATION
     Dosage: 300 MG,, Q12H
     Route: 065
  8. PERAMPANEL [Concomitant]
     Active Substance: PERAMPANEL
     Indication: PRODUCT USED FOR UNKNOWN INDICATION
     Dosage: 12 MG, QD
     Route: 065

REACTIONS (2)
  - Off label use [Recovered/Resolved]
  - Product administration error [Recovered/Resolved]

NARRATIVE: CASE EVENT DATE: 20200501
